FAERS Safety Report 5822795-2 (Version None)
Quarter: 2008Q3

REPORT INFORMATION
  Report Type: 
  Country: None (occurrence: None)
  Receive Date: 20080718
  Receipt Date: 20080506
  Transmission Date: 20090109
  Serious: Yes (Life-Threatening)
  Sender: FDA-Public Use
  Company Number: 2008PV000036

PATIENT
  Age: 54 Year
  Sex: Female
  Weight: 74.3899 kg

DRUGS (8)
  1. DEPODUR [Suspect]
     Indication: PROCEDURAL PAIN
     Dosage: 10 MG;1X;ED
     Route: 008
     Dates: start: 20070219, end: 20070219
  2. CLARITIN /00413701/ [Concomitant]
  3. SINGULAIR [Concomitant]
  4. ALBUTEROL [Concomitant]
  5. ZOLOFT [Concomitant]
  6. FOSAMAX [Concomitant]
  7. ADVANT [Concomitant]
  8. ESTROVEN /02150801/ [Concomitant]

REACTIONS (3)
  - COMA [None]
  - DYSARTHRIA [None]
  - HYPOTENSION [None]
